FAERS Safety Report 5670143-3 (Version None)
Quarter: 2008Q1

REPORT INFORMATION
  Report Type: 
  Country: None (occurrence: None)
  Receive Date: 20080312
  Receipt Date: 20080228
  Transmission Date: 20080703
  Serious: Yes (Hospitalization)
  Sender: FDA-Public Use
  Company Number: 18487

PATIENT
  Sex: Male

DRUGS (1)
  1. METHOTREXATE [Suspect]

REACTIONS (1)
  - PNEUMONIA LEGIONELLA [None]
